FAERS Safety Report 5398236-9 (Version None)
Quarter: 2007Q3

REPORT INFORMATION
  Report Type: 
  Country: None (occurrence: None)
  Receive Date: 20070726
  Receipt Date: 20070716
  Transmission Date: 20080115
  Serious: Yes (Other)
  Sender: FDA-Public Use
  Company Number: GB-PFIZER INC-2007055210

PATIENT
  Age: 95 Year
  Sex: Male

DRUGS (6)
  1. NEURONTIN [Suspect]
     Indication: FACIAL PAIN
     Route: 048
  2. SALBUTAMOL [Concomitant]
  3. ALL OTHER THERAPEUTIC PRODUCTS [Concomitant]
  4. FUROSEMIDE [Concomitant]
  5. AMLODIPINE [Concomitant]
  6. ENALAPRIL MALEATE [Concomitant]

REACTIONS (2)
  - DEATH [None]
  - TREMOR [None]
